FAERS Safety Report 24105991 (Version 1)
Quarter: 2024Q3

REPORT INFORMATION
  Report Type: Spontaneous
  Country: GB (occurrence: None)
  Receive Date: 20240717
  Receipt Date: 20240717
  Transmission Date: 20241017
  Serious: Yes (Life-Threatening, Hospitalization)
  Sender: ASTRAZENECA
  Company Number: 2024A160731

PATIENT
  Sex: Female

DRUGS (1)
  1. LOKELMA [Suspect]
     Active Substance: SODIUM ZIRCONIUM CYCLOSILICATE
     Indication: Blood potassium increased
     Dosage: 5
     Route: 048

REACTIONS (4)
  - Blood potassium increased [Recovered/Resolved with Sequelae]
  - Arteriovenous fistula thrombosis [Recovered/Resolved with Sequelae]
  - Azotaemia [Recovered/Resolved with Sequelae]
  - Vomiting [Recovered/Resolved with Sequelae]
